FAERS Safety Report 8076979-6 (Version None)
Quarter: 2012Q1

REPORT INFORMATION
  Report Type: 
  Country: None (occurrence: None)
  Receive Date: 20120127
  Receipt Date: 20120125
  Transmission Date: 20120608
  Serious: Yes (Death)
  Sender: FDA-Public Use
  Company Number: US-GLAXOSMITHKLINE-A0963122A

PATIENT
  Age: 82 Year
  Sex: Female

DRUGS (9)
  1. EXELON [Concomitant]
  2. ADVAIR DISKUS 100/50 [Suspect]
     Indication: CHRONIC OBSTRUCTIVE PULMONARY DISEASE
     Dosage: 1PUFF TWICE PER DAY
     Route: 055
  3. SPIRIVA [Concomitant]
  4. CHOLESTEROL REDUCING AGENT NAME NOT KNOWN [Concomitant]
  5. VENTOLIN [Suspect]
     Indication: ASTHMA
     Route: 055
  6. LASIX [Concomitant]
  7. NEBULIZER [Concomitant]
  8. OXYGEN [Concomitant]
  9. NERVE MEDICATION [Concomitant]

REACTIONS (4)
  - VOMITING [None]
  - SUBARACHNOID HAEMORRHAGE [None]
  - FALL [None]
  - CEREBRAL HAEMORRHAGE [None]
